FAERS Safety Report 7910884-8 (Version None)
Quarter: 2011Q4

REPORT INFORMATION
  Report Type: 
  Country: None (occurrence: None)
  Receive Date: 20111114
  Receipt Date: 20111110
  Transmission Date: 20120403
  Serious: No
  Sender: FDA-Public Use
  Company Number: US-BIOGENIDEC-2010BI034170

PATIENT
  Sex: Female

DRUGS (3)
  1. TYSABRI [Suspect]
     Indication: MULTIPLE SCLEROSIS
     Route: 042
     Dates: start: 20100913, end: 20100913
  2. TYSABRI [Suspect]
     Route: 042
     Dates: start: 20110707
  3. AVONEX [Concomitant]
     Indication: MULTIPLE SCLEROSIS
     Route: 030
     Dates: start: 20000601

REACTIONS (6)
  - MUSCULAR WEAKNESS [None]
  - DRUG INEFFECTIVE [None]
  - PALPITATIONS [None]
  - PRURITUS [None]
  - HYPERSOMNIA [None]
  - MEMORY IMPAIRMENT [None]
